FAERS Safety Report 7958739-7 (Version None)
Quarter: 2011Q4

REPORT INFORMATION
  Report Type: 
  Country: None (occurrence: None)
  Receive Date: 20111206
  Receipt Date: 20111124
  Transmission Date: 20120403
  Serious: Yes (Other)
  Sender: FDA-Public Use
  Company Number: CA-JNJFOC-20111202058

PATIENT
  Sex: Male
  Weight: 96 kg

DRUGS (2)
  1. REMICADE [Suspect]
     Indication: CROHN'S DISEASE
     Route: 042
     Dates: start: 20110501, end: 20111101
  2. PREDNISONE TAB [Concomitant]
     Route: 048

REACTIONS (2)
  - LACERATION [None]
  - WOUND DRAINAGE [None]
